FAERS Safety Report 9490629 (Version 1)
Quarter: 2013Q3

REPORT INFORMATION
  Report Type: Spontaneous
  Country: BR (occurrence: BR)
  Receive Date: 20130830
  Receipt Date: 20130830
  Transmission Date: 20140515
  Serious: Yes (Other)
  Sender: FDA-Public Use
  Company Number: PHHY2013BR094189

PATIENT
  Age: 74 Year
  Sex: Female
  Weight: 50 kg

DRUGS (8)
  1. GALVUS MET [Suspect]
     Indication: DIABETES MELLITUS
     Dosage: 2 DF, (850 MG METF/ 50 MG VILDA) DAILY
     Route: 048
     Dates: start: 201304
  2. DIOVAN [Suspect]
     Indication: CARDIAC DISORDER
     Dosage: 1 DF, (320 MG) DAILY
     Route: 048
  3. ANCORON [Concomitant]
     Indication: CARDIAC DISORDER
     Dosage: 1 DF, (200 MG)DAILY
     Route: 048
     Dates: start: 2013
  4. SELOZOK [Concomitant]
     Indication: CARDIAC DISORDER
     Dosage: 1 DF, (50 MG) DAILY
     Route: 048
     Dates: start: 2013
  5. PLAVIX [Concomitant]
     Indication: CARDIAC DISORDER
     Dosage: 1 DF, (75 MG) DAILY
     Route: 048
     Dates: start: 201307
  6. SIMVASTATIN [Concomitant]
     Indication: BLOOD CHOLESTEROL ABNORMAL
     Dosage: 1 DF, (40 MG) DAILY
     Route: 048
  7. PANTOPRAZOLE [Concomitant]
     Indication: GASTRIC DISORDER
     Dosage: 1 DF, (40 MG) DAILY
     Route: 048
     Dates: start: 2013
  8. ASPIRINA PREVENT [Concomitant]
     Indication: BLOOD DISORDER
     Dosage: 1 DF, (100 MG) DAILY
     Route: 048

REACTIONS (6)
  - Infarction [Recovered/Resolved]
  - Coronary artery occlusion [Recovered/Resolved]
  - Weight decreased [Recovering/Resolving]
  - Headache [Recovering/Resolving]
  - Nausea [Recovering/Resolving]
  - Dizziness [Recovering/Resolving]
